FAERS Safety Report 7620456-0 (Version None)
Quarter: 2011Q3

REPORT INFORMATION
  Report Type: 
  Country: None (occurrence: None)
  Receive Date: 20110719
  Receipt Date: 20110711
  Transmission Date: 20111222
  Serious: Yes (Hospitalization)
  Sender: FDA-Public Use
  Company Number: PHHY2011US63017

PATIENT
  Age: 56 Year
  Sex: Female

DRUGS (3)
  1. AZATHIOPRINE [Concomitant]
     Indication: LIVER TRANSPLANT
  2. TACROLIMUS [Concomitant]
     Indication: LIVER TRANSPLANT
  3. NEORAL [Suspect]
     Indication: LIVER TRANSPLANT
     Dosage: UNK

REACTIONS (1)
  - BILE DUCT STONE [None]
